FAERS Safety Report 8903209 (Version 1)
Quarter: 2012Q4

REPORT INFORMATION
  Report Type: 
  Country: US (occurrence: US)
  Receive Date: 20121113
  Receipt Date: 20121113
  Transmission Date: 20130627
  Serious: No
  Sender: FDA-Public Use
  Company Number: US-BAYER-2012-118499

PATIENT
  Age: 50 Year
  Sex: Female
  Weight: 82 kg

DRUGS (6)
  1. ALEVE CAPLET/TABLET,MIDOL EXTENDED RELIEF CAPLET [Suspect]
     Indication: PAIN RELIEF
     Dosage: bottle count 24s
     Route: 048
  2. ALEVE CAPLET/TABLET,MIDOL EXTENDED RELIEF CAPLET [Suspect]
     Indication: NEURALGIA
  3. NORVASC [Concomitant]
  4. LYRICA [Concomitant]
  5. OXYCODONE [Concomitant]
  6. OXYCONTIN [Concomitant]

REACTIONS (1)
  - Abdominal discomfort [Recovered/Resolved]
